FAERS Safety Report 9218902 (Version 2)
Quarter: 2013Q2

REPORT INFORMATION
  Report Type: Spontaneous
  Country: US (occurrence: US)
  Receive Date: 20130409
  Receipt Date: 20130508
  Transmission Date: 20140414
  Serious: Yes (Other)
  Sender: FDA-Public Use
  Company Number: US-JNJFOC-20130402216

PATIENT
  Sex: Male
  Weight: 149.69 kg

DRUGS (9)
  1. STELARA [Suspect]
     Indication: PSORIASIS
     Route: 058
     Dates: start: 20130315
  2. SPIRIVA [Concomitant]
     Indication: CHRONIC OBSTRUCTIVE PULMONARY DISEASE
     Route: 055
     Dates: start: 20130128
  3. SYMBICORT [Concomitant]
     Indication: CHRONIC OBSTRUCTIVE PULMONARY DISEASE
     Dosage: 2 PUFFS
     Route: 055
     Dates: start: 20130128
  4. MATZIM LA [Concomitant]
     Indication: HYPERTENSION
     Route: 048
     Dates: start: 20130211
  5. METFORMIN [Concomitant]
     Indication: TYPE 2 DIABETES MELLITUS
     Route: 048
     Dates: start: 2009
  6. VICTOZA [Concomitant]
     Indication: TYPE 2 DIABETES MELLITUS
     Route: 058
     Dates: start: 2011
  7. DIOVAN HCT [Concomitant]
     Indication: HYPERTENSION
     Dosage: 160 MG-25 MG
     Route: 048
     Dates: start: 2011
  8. ASPIRIN [Concomitant]
     Indication: PROPHYLAXIS
     Route: 048
     Dates: start: 2008
  9. CRESTOR [Concomitant]
     Indication: HYPERCHOLESTEROLAEMIA
     Route: 048
     Dates: start: 2011, end: 20130329

REACTIONS (3)
  - Cholelithiasis [Unknown]
  - Nephrolithiasis [Unknown]
  - Hepatic enzyme increased [Recovered/Resolved]
